FAERS Safety Report 10542230 (Version 1)
Quarter: 2014Q4

REPORT INFORMATION
  Report Type: Spontaneous
  Country: US (occurrence: US)
  Receive Date: 20141024
  Receipt Date: 20141024
  Transmission Date: 20150529
  Serious: Yes (Hospitalization)
  Sender: FDA-Public Use
  Company Number: PHHY2014US138263

PATIENT
  Sex: Female
  Weight: 77.11 kg

DRUGS (12)
  1. AMLODIPINE [Suspect]
     Active Substance: AMLODIPINE BESYLATE
     Indication: HYPERTENSION
     Dosage: 5 MG, QD
     Route: 065
  2. ZIPRASIDONE [Suspect]
     Active Substance: ZIPRASIDONE
     Indication: SCHIZOPHRENIA
     Dosage: 60 MG, BID
     Route: 065
  3. ZIPRASIDONE [Suspect]
     Active Substance: ZIPRASIDONE
     Dosage: 40 MG, QD
     Route: 065
  4. ZIPRASIDONE [Suspect]
     Active Substance: ZIPRASIDONE
     Dosage: 60 MG, QD (AT DINNER TIME)
     Dates: start: 2012
  5. HALDOL [Suspect]
     Active Substance: HALOPERIDOL
     Indication: MENTAL DISABILITY
     Dosage: 4 MG, (AT NIGHT)
     Route: 065
  6. ZIPRASIDONE [Suspect]
     Active Substance: ZIPRASIDONE
     Dosage: 100 MG, UNK (ONE 60 MG AND ONE 40 MG)
     Route: 065
  7. CLONIDINE. [Suspect]
     Active Substance: CLONIDINE
     Indication: HYPERTENSION
     Dosage: 0.2 MG, BID
     Route: 065
  8. METOPROLOL [Suspect]
     Active Substance: METOPROLOL
     Indication: HYPERTENSION
     Dosage: 25 MG, BID
     Route: 065
     Dates: start: 2000
  9. HALDOL [Suspect]
     Active Substance: HALOPERIDOL
     Indication: SCHIZOPHRENIA
  10. HYDRALAZINE [Suspect]
     Active Substance: HYDRALAZINE HYDROCHLORIDE
     Indication: HYPERTENSION
     Dosage: 10 MG, BID
     Route: 065
  11. ZIPRASIDONE [Suspect]
     Active Substance: ZIPRASIDONE
     Dosage: 100 MG, UNK (80 MG AND 20 MG)
     Route: 065
     Dates: start: 2011, end: 2011
  12. ZIPRASIDONE [Suspect]
     Active Substance: ZIPRASIDONE
     Dosage: 60 MG, BID
     Route: 065
     Dates: end: 2012

REACTIONS (12)
  - Feeling abnormal [Unknown]
  - Blood cholesterol increased [Unknown]
  - Dizziness [Unknown]
  - White blood cell count decreased [Unknown]
  - Somnolence [Unknown]
  - Fatigue [Unknown]
  - Crying [Unknown]
  - Hyperhidrosis [Recovering/Resolving]
  - Blood electrolytes decreased [Unknown]
  - Overweight [Unknown]
  - Blood pressure increased [Unknown]
  - Mental disorder [Unknown]

NARRATIVE: CASE EVENT DATE: 2012
